FAERS Safety Report 8150580 (Version 7)
Quarter: 2013Q2

REPORT INFORMATION
  Report Type: Spontaneous
  Country: US (occurrence: US)
  Receive Date: 20110922
  Receipt Date: 20130528
  Transmission Date: 20140414
  Serious: Yes (Disabling, Other)
  Sender: FDA-Public Use
  Company Number: PHHY2011US83420

PATIENT
  Age: 69 Year
  Sex: Female
  Weight: 87.91 kg

DRUGS (6)
  1. STALEVO [Suspect]
     Indication: PARKINSON^S DISEASE
     Dosage: 1 DF, QD
     Route: 048
     Dates: start: 20080921
  2. STALEVO [Suspect]
     Dosage: UNK
     Dates: start: 20110913, end: 20110918
  3. STALEVO [Suspect]
     Dosage: UNK
     Route: 048
     Dates: start: 20110918
  4. VITAMIN D [Concomitant]
     Dosage: 50000 IU, UNK
  5. ZELAPAR [Concomitant]
     Dosage: UNK UKN, UNK
  6. REQUIP [Concomitant]
     Indication: PARKINSON^S DISEASE
     Dosage: 1 TABLET DAILY
     Dates: start: 20090522

REACTIONS (10)
  - Pelvic fracture [Unknown]
  - Chromaturia [Recovered/Resolved]
  - Parkinson^s disease [Recovered/Resolved]
  - Tremor [Recovered/Resolved]
  - Dysstasia [Recovered/Resolved]
  - Muscle rigidity [Recovered/Resolved]
  - Mobility decreased [Unknown]
  - Gait disturbance [Recovered/Resolved]
  - Disease recurrence [None]
  - Product quality issue [None]
